FAERS Safety Report 11598703 (Version 1)
Quarter: 2015Q4

REPORT INFORMATION
  Report Type: Spontaneous
  Country: US (occurrence: US)
  Receive Date: 20151006
  Receipt Date: 20151006
  Transmission Date: 20160304
  Serious: Yes (Hospitalization, Other)
  Sender: FDA-Public Use
  Company Number: US-GLAXOSMITHKLINE-US2015139180

PATIENT
  Age: 86 Year
  Sex: Male

DRUGS (6)
  1. SYMBICORT [Concomitant]
     Active Substance: BUDESONIDE\FORMOTEROL FUMARATE DIHYDRATE
  2. SPIRIVA [Concomitant]
     Active Substance: TIOTROPIUM BROMIDE MONOHYDRATE
  3. OXYCONTIN [Concomitant]
     Active Substance: OXYCODONE HYDROCHLORIDE
  4. AVODART [Suspect]
     Active Substance: DUTASTERIDE
     Indication: PROSTATOMEGALY
     Dosage: 0.5 MG, QD
     Route: 048
  5. FENTANYL. [Concomitant]
     Active Substance: FENTANYL
  6. PERCOCET [Concomitant]
     Active Substance: ACETAMINOPHEN\OXYCODONE HYDROCHLORIDE

REACTIONS (11)
  - Cough [Unknown]
  - Productive cough [Unknown]
  - Pain in extremity [Not Recovered/Not Resolved]
  - Cardiac failure congestive [Not Recovered/Not Resolved]
  - Chest pain [Unknown]
  - Chronic obstructive pulmonary disease [Not Recovered/Not Resolved]
  - Pneumonia [Unknown]
  - Rhinorrhoea [Not Recovered/Not Resolved]
  - Emphysema [Not Recovered/Not Resolved]
  - Back pain [Not Recovered/Not Resolved]
  - Infection [Unknown]

NARRATIVE: CASE EVENT DATE: 2014
